FAERS Safety Report 7421099-4 (Version None)
Quarter: 2011Q2

REPORT INFORMATION
  Report Type: 
  Country: None (occurrence: None)
  Receive Date: 20110418
  Receipt Date: 20110325
  Transmission Date: 20111010
  Serious: Yes (Other)
  Sender: FDA-Public Use
  Company Number: US-BAYER-201028817NA

PATIENT
  Age: 31 Year
  Sex: Female
  Weight: 63.492 kg

DRUGS (6)
  1. ACETAMINOPHEN [Concomitant]
  2. TAGAMET [Concomitant]
     Indication: GASTROOESOPHAGEAL REFLUX DISEASE
  3. NAPROXEN (ALEVE) [Concomitant]
     Dosage: UNK
     Dates: start: 20060101
  4. TAGAMET [Concomitant]
     Indication: DYSPEPSIA
  5. ORTHO TRI-CYCLEN [Concomitant]
  6. YAZ [Suspect]
     Indication: PRODUCT USED FOR UNKNOWN INDICATION
     Dosage: UNK
     Route: 048
     Dates: start: 20070901, end: 20090801

REACTIONS (4)
  - DEEP VEIN THROMBOSIS [None]
  - GALLBLADDER DISORDER [None]
  - PULMONARY EMBOLISM [None]
  - CHOLECYSTITIS [None]
